FAERS Safety Report 9303913 (Version 1)
Quarter: 2013Q2

REPORT INFORMATION
  Report Type: Spontaneous
  Country: US (occurrence: US)
  Receive Date: 20130522
  Receipt Date: 20130522
  Transmission Date: 20140414
  Serious: No
  Sender: FDA-Public Use
  Company Number: US-009507513-1305USA012483

PATIENT
  Sex: 0

DRUGS (5)
  1. DECADRON [Suspect]
  2. ZOFRAN [Concomitant]
  3. ATIVAN [Concomitant]
  4. REGLAN [Concomitant]
  5. BENADRYL [Concomitant]

REACTIONS (1)
  - Drug ineffective [Unknown]
